FAERS Safety Report 25848573 (Version 1)
Quarter: 2025Q3

REPORT INFORMATION
  Report Type: Spontaneous
  Country: US (occurrence: US)
  Receive Date: 20250925
  Receipt Date: 20250925
  Transmission Date: 20251021
  Serious: Yes (Hospitalization, Other)
  Sender: NOVO NORDISK
  Company Number: US-NOVOPROD-1525714

PATIENT
  Age: 59 Year
  Sex: Male

DRUGS (1)
  1. NOVOLOG [Suspect]
     Active Substance: INSULIN ASPART
     Indication: Diabetes mellitus
     Route: 058
     Dates: start: 201612

REACTIONS (1)
  - Foot amputation [Not Recovered/Not Resolved]

NARRATIVE: CASE EVENT DATE: 20250802
